FAERS Safety Report 4909098-5 (Version None)
Quarter: 2006Q1

REPORT INFORMATION
  Report Type: 
  Country: None (occurrence: None)
  Receive Date: 20060210
  Receipt Date: 20060210
  Transmission Date: 20060701
  Serious: No
  Sender: FDA-Public Use
  Company Number: None

PATIENT
  Age: 54 Year
  Sex: Male
  Weight: 74.8435 kg

DRUGS (2)
  1. HYOSCYAMINE   0.375   KREMERS URBAN [Suspect]
     Indication: IRRITABLE BOWEL SYNDROME
     Dosage: 1 TABLET TWICE DAILY PO
     Route: 048
     Dates: start: 20050607, end: 20051017
  2. HYOSCYAMINE   0.375   KREMERS URBAN [Suspect]
     Indication: IRRITABLE BOWEL SYNDROME
     Dosage: 1 TABLET TWICE DAILY PO
     Route: 048
     Dates: start: 20051119, end: 20051226

REACTIONS (4)
  - DIFFICULTY IN WALKING [None]
  - DRUG EFFECT DECREASED [None]
  - DYSKINESIA [None]
  - PHARMACEUTICAL PRODUCT COMPLAINT [None]
